FAERS Safety Report 19830887 (Version 1)
Quarter: 2021Q3

REPORT INFORMATION
  Report Type: Spontaneous
  Country: US (occurrence: US)
  Receive Date: 20210914
  Receipt Date: 20210914
  Transmission Date: 20211014
  Serious: Yes (Hospitalization)
  Sender: FDA-Public Use
  Company Number: None

PATIENT
  Age: 77 Year
  Sex: Female
  Weight: 88.8 kg

DRUGS (3)
  1. DEXAMETHASONE. [Suspect]
     Active Substance: DEXAMETHASONE
     Dates: end: 20210902
  2. DARZALEX FASPRO [Suspect]
     Active Substance: DARATUMUMAB\HYALURONIDASE-FIHJ
     Indication: PRODUCT USED FOR UNKNOWN INDICATION
     Dates: end: 20210901
  3. LENALIDOMIDE 25 MG [Suspect]
     Active Substance: LENALIDOMIDE
     Dates: end: 20210910

REACTIONS (4)
  - Respiratory failure [None]
  - Pneumonia [None]
  - Acute kidney injury [None]
  - Encephalopathy [None]

NARRATIVE: CASE EVENT DATE: 20210911
